FAERS Safety Report 5093014-2 (Version None)
Quarter: 2006Q3

REPORT INFORMATION
  Report Type: 
  Country: None (occurrence: None)
  Receive Date: 20060828
  Receipt Date: 20060816
  Transmission Date: 20061208
  Serious: Yes (Other)
  Sender: FDA-Public Use
  Company Number: GXKR2006GB04950

PATIENT
  Age: 50 Year

DRUGS (2)
  1. PAROXETINE HCL [Suspect]
  2. NEULACTIL (PERICIAZINE) [Suspect]
     Dosage: 2.5 MG
     Dates: start: 20051201

REACTIONS (1)
  - TARDIVE DYSKINESIA [None]
